FAERS Safety Report 7823559-0 (Version None)
Quarter: 2011Q4

REPORT INFORMATION
  Report Type: 
  Country: None (occurrence: None)
  Receive Date: 20111014
  Receipt Date: 20111006
  Transmission Date: 20120403
  Serious: No
  Sender: FDA-Public Use
  Company Number: VER-2011-00796

PATIENT
  Age: 72 Year
  Sex: Male
  Weight: 81.1939 kg

DRUGS (1)
  1. CYCLOSET [Suspect]
     Indication: PRODUCT USED FOR UNKNOWN INDICATION

REACTIONS (7)
  - VERTIGO [None]
  - NASAL CONGESTION [None]
  - HAEMORRHAGE [None]
  - DYSPNOEA [None]
  - HYPOTENSION [None]
  - ASTHENIA [None]
  - ANXIETY [None]
